FAERS Safety Report 22270161 (Version 3)
Quarter: 2025Q3

REPORT INFORMATION
  Report Type: Spontaneous
  Country: JP (occurrence: JP)
  Receive Date: 20230501
  Receipt Date: 20250818
  Transmission Date: 20251020
  Serious: Yes (Other)
  Sender: REGENERON
  Company Number: JP-SA-2023SA131161

PATIENT
  Age: 6 Decade
  Sex: Female

DRUGS (1)
  1. LIBTAYO [Suspect]
     Active Substance: CEMIPLIMAB-RWLC
     Indication: Cervix carcinoma
     Route: 041
     Dates: start: 20230406, end: 202304

REACTIONS (2)
  - Mechanical ileus [Recovering/Resolving]
  - Stoma obstruction [Recovering/Resolving]

NARRATIVE: CASE EVENT DATE: 20230401
